FAERS Safety Report 7609020-7 (Version None)
Quarter: 2011Q3

REPORT INFORMATION
  Report Type: 
  Country: None (occurrence: None)
  Receive Date: 20110714
  Receipt Date: 20110711
  Transmission Date: 20111222
  Serious: Yes (Hospitalization)
  Sender: FDA-Public Use
  Company Number: US-GILEAD-2011-0041625

PATIENT
  Age: 70 Year
  Sex: Female

DRUGS (2)
  1. LETAIRIS [Suspect]
     Indication: PRODUCT USED FOR UNKNOWN INDICATION
     Route: 048
     Dates: start: 20090521
  2. FLOLAN [Concomitant]

REACTIONS (3)
  - TEMPERATURE INTOLERANCE [None]
  - SYNCOPE [None]
  - ANGINA PECTORIS [None]
